FAERS Safety Report 6524354-5 (Version None)
Quarter: 2010Q1

REPORT INFORMATION
  Report Type: 
  Country: None (occurrence: None)
  Receive Date: 20100101
  Receipt Date: 20091223
  Transmission Date: 20100710
  Serious: Yes (Hospitalization)
  Sender: FDA-Public Use
  Company Number: US-BIOGENIDEC-2009BI039559

PATIENT
  Age: 50 Year
  Sex: Female

DRUGS (2)
  1. TYSABRI [Suspect]
     Indication: MULTIPLE SCLEROSIS
     Route: 042
     Dates: start: 20050201, end: 20050201
  2. TYSABRI [Suspect]
     Route: 042
     Dates: start: 20091103

REACTIONS (9)
  - APPENDICITIS [None]
  - ASTHENIA [None]
  - LUNG NEOPLASM [None]
  - MEMORY IMPAIRMENT [None]
  - MOBILITY DECREASED [None]
  - NEOPLASM OF APPENDIX [None]
  - PAIN [None]
  - POOR VENOUS ACCESS [None]
  - PYREXIA [None]
